FAERS Safety Report 6709016-3 (Version None)
Quarter: 2010Q2

REPORT INFORMATION
  Report Type: 
  Country: None (occurrence: None)
  Receive Date: 20100503
  Receipt Date: 20100503
  Transmission Date: 20101027
  Serious: No
  Sender: FDA-Public Use
  Company Number: None

PATIENT
  Sex: Female

DRUGS (1)
  1. COSOPT [Suspect]
     Indication: OPEN ANGLE GLAUCOMA
     Dosage: OD QHS 1 DROP @ NIGHT TOPICAL
     Route: 061
     Dates: start: 20020101

REACTIONS (4)
  - BURNING SENSATION [None]
  - HEART RATE INCREASED [None]
  - NAUSEA [None]
  - PRODUCT SUBSTITUTION ISSUE [None]
